FAERS Safety Report 24654197 (Version 1)
Quarter: 2024Q4

REPORT INFORMATION
  Report Type: Spontaneous
  Country: US (occurrence: None)
  Receive Date: 20241122
  Receipt Date: 20241122
  Transmission Date: 20250114
  Serious: Yes (Life-Threatening, Hospitalization)
  Sender: Public
  Company Number: None

PATIENT
  Age: 84 Year
  Sex: Male
  Weight: 96 kg

DRUGS (2)
  1. WARFARIN SODIUM [Suspect]
     Active Substance: WARFARIN SODIUM
     Indication: Atrial fibrillation
  2. ASPIRIN [Suspect]
     Active Substance: ASPIRIN

REACTIONS (5)
  - Upper gastrointestinal haemorrhage [None]
  - Gait disturbance [None]
  - Dyspnoea [None]
  - Red blood cell transfusion [None]
  - Therapy interrupted [None]

NARRATIVE: CASE EVENT DATE: 20240820
